FAERS Safety Report 24614818 (Version 1)
Quarter: 2024Q4

REPORT INFORMATION
  Report Type: Other
  Country: SK (occurrence: SK)
  Receive Date: 20241113
  Receipt Date: 20241113
  Transmission Date: 20250114
  Serious: Yes (Other)
  Sender: MERCK KGAA
  Company Number: SK-Merck Healthcare KGaA-2024058365

PATIENT
  Age: 36 Year
  Sex: Female

DRUGS (1)
  1. LEVOTHYROXINE [Suspect]
     Active Substance: LEVOTHYROXINE
     Indication: Hyperthyroidism

REACTIONS (9)
  - Perinatal depression [Unknown]
  - Growth hormone deficiency [Unknown]
  - Postpartum hypopituitarism [Unknown]
  - Central hypothyroidism [Unknown]
  - Insulin-like growth factor decreased [Unknown]
  - Hypopituitarism [Unknown]
  - Empty sella syndrome [Unknown]
  - Silent thyroiditis [Unknown]
  - Hyperthyroidism [Unknown]
